FAERS Safety Report 26104310 (Version 1)
Quarter: 2025Q4

REPORT INFORMATION
  Report Type: Spontaneous
  Country: EU (occurrence: EU)
  Receive Date: 20251130
  Receipt Date: 20251130
  Transmission Date: 20260118
  Serious: Yes (Hospitalization)
  Sender: MERCK SHARP & DOHME LLC
  Company Number: None

PATIENT
  Age: 76 Year
  Sex: Female
  Weight: 40 kg

DRUGS (3)
  1. PEMBROLIZUMAB [Suspect]
     Active Substance: PEMBROLIZUMAB
     Indication: Colon cancer
     Dosage: TIME INTERVAL: TOTAL: ONE-TIME 200 MG
     Dates: start: 20250903
  2. PREDNISOLONE [Concomitant]
     Active Substance: PREDNISOLONE
  3. NADROPARIN [Concomitant]
     Active Substance: NADROPARIN
     Dosage: INJECTION FLUID, 19000 IU/ML (UNITS PER MILLILITER)

REACTIONS (1)
  - Aphasia [Recovering/Resolving]

NARRATIVE: CASE EVENT DATE: 20250101
